FAERS Safety Report 17612701 (Version 1)
Quarter: 2020Q2

REPORT INFORMATION
  Report Type: Report from Study
  Country: US (occurrence: US)
  Receive Date: 20200401
  Receipt Date: 20200401
  Transmission Date: 20200713
  Serious: Yes (Hospitalization, Other)
  Sender: FDA-Public Use
  Company Number: US-ACTELION-A-US2016-136757

PATIENT
  Sex: Male
  Weight: 97.51 kg

DRUGS (6)
  1. ADCIRCA [Concomitant]
     Active Substance: TADALAFIL
  2. UPTRAVI [Suspect]
     Active Substance: SELEXIPAG
     Dosage: UNK MCG, UNK
     Route: 048
     Dates: start: 20160429
  3. LETAIRIS [Suspect]
     Active Substance: AMBRISENTAN
     Indication: PULMONARY HYPERTENSION
     Dosage: 5 MG, QD
     Route: 048
     Dates: end: 201903
  4. UPTRAVI [Suspect]
     Active Substance: SELEXIPAG
     Dosage: 400 MCG, BID
     Route: 048
  5. UPTRAVI [Suspect]
     Active Substance: SELEXIPAG
     Indication: PULMONARY HYPERTENSION
     Dosage: 400 MCG, BID
     Route: 048
  6. UPTRAVI [Suspect]
     Active Substance: SELEXIPAG
     Dosage: 400 MCG, QD
     Route: 048

REACTIONS (18)
  - Headache [Unknown]
  - Gout [Unknown]
  - Influenza like illness [Unknown]
  - Myalgia [Unknown]
  - Adverse event [Unknown]
  - Musculoskeletal discomfort [Unknown]
  - Hypertension [Unknown]
  - Skin discolouration [Unknown]
  - Migraine [Unknown]
  - Cervical vertebral fracture [Unknown]
  - Chest pain [Unknown]
  - Pain in jaw [Unknown]
  - Product dose omission [Unknown]
  - Nausea [Recovering/Resolving]
  - Peripheral swelling [Recovering/Resolving]
  - Feeling abnormal [Recovering/Resolving]
  - Dyspnoea [Unknown]
  - Influenza [Unknown]
